FAERS Safety Report 5628961-3 (Version None)
Quarter: 2008Q1

REPORT INFORMATION
  Report Type: 
  Country: None (occurrence: None)
  Receive Date: 20080214
  Receipt Date: 20080124
  Transmission Date: 20080703
  Serious: Yes (Hospitalization)
  Sender: FDA-Public Use
  Company Number: 08H-163-0313834-00

PATIENT
  Age: 76 Year
  Sex: Male

DRUGS (2)
  1. BUPIVACAINE HCL [Suspect]
     Indication: ARTHRALGIA
     Dosage: ONCE, INJECTION
     Dates: start: 20071217, end: 20071217
  2. TRIAMCINOLONE [Concomitant]

REACTIONS (4)
  - ABSCESS [None]
  - CONDITION AGGRAVATED [None]
  - PAIN [None]
  - STAPHYLOCOCCAL INFECTION [None]
